FAERS Safety Report 12632150 (Version 3)
Quarter: 2016Q3

REPORT INFORMATION
  Report Type: Spontaneous
  Country: US (occurrence: US)
  Receive Date: 20160808
  Receipt Date: 20160825
  Transmission Date: 20161109
  Serious: No
  Sender: FDA-Public Use
  Company Number: US-BEH-2016061986

PATIENT
  Sex: Female
  Weight: 36.29 kg

DRUGS (23)
  1. ANASTROZOLE. [Concomitant]
     Active Substance: ANASTROZOLE
  2. BROVANA [Concomitant]
     Active Substance: ARFORMOTEROL TARTRATE
  3. HIZENTRA [Suspect]
     Active Substance: HUMAN IMMUNOGLOBULIN G
     Indication: IMMUNODEFICIENCY COMMON VARIABLE
     Route: 058
  4. PERCOCET [Concomitant]
     Active Substance: ACETAMINOPHEN\OXYCODONE HYDROCHLORIDE
  5. SALAGEN [Concomitant]
     Active Substance: PILOCARPINE HYDROCHLORIDE
  6. XOPENEX [Concomitant]
     Active Substance: LEVALBUTEROL HYDROCHLORIDE
  7. OMEPRAZOLE. [Concomitant]
     Active Substance: OMEPRAZOLE
  8. RESTASIS [Concomitant]
     Active Substance: CYCLOSPORINE
  9. EPIPEN [Concomitant]
     Active Substance: EPINEPHRINE
  10. XOLAIR [Concomitant]
     Active Substance: OMALIZUMAB
  11. LISINOPRIL. [Concomitant]
     Active Substance: LISINOPRIL
  12. PREDNISONE. [Concomitant]
     Active Substance: PREDNISONE
  13. ASTELIN [Concomitant]
     Active Substance: AZELASTINE HYDROCHLORIDE
  14. HIZENTRA [Suspect]
     Active Substance: HUMAN IMMUNOGLOBULIN G
     Dosage: 5 G, QW
     Route: 058
     Dates: start: 20110302
  15. ACETAMINOPHEN. [Concomitant]
     Active Substance: ACETAMINOPHEN
  16. LIDOCAINE. [Concomitant]
     Active Substance: LIDOCAINE
  17. DIPHENHYDRAMINE. [Concomitant]
     Active Substance: DIPHENHYDRAMINE
  18. DALIRESP [Concomitant]
     Active Substance: ROFLUMILAST
  19. SPIRIVA [Concomitant]
     Active Substance: TIOTROPIUM BROMIDE MONOHYDRATE
  20. HIZENTRA [Suspect]
     Active Substance: HUMAN IMMUNOGLOBULIN G
     Dosage: UNK
     Route: 058
  21. BUDESONIDE. [Concomitant]
     Active Substance: BUDESONIDE
  22. MULTIVITAMIN [Concomitant]
     Active Substance: VITAMINS
  23. CALCIUM [Concomitant]
     Active Substance: CALCIUM

REACTIONS (1)
  - Nasopharyngitis [Unknown]
